FAERS Safety Report 4865969-X (Version None)
Quarter: 2005Q4

REPORT INFORMATION
  Report Type: 
  Country: None (occurrence: None)
  Receive Date: 20051226
  Receipt Date: 20051219
  Transmission Date: 20060501
  Serious: Yes (Hospitalization)
  Sender: FDA-Public Use
  Company Number: PHRM2005FR03330

PATIENT
  Age: 92 Year
  Sex: Female
  Weight: 57 kg

DRUGS (9)
  1. STILNOX [Suspect]
     Dosage: 10 MG, QD
     Route: 048
  2. XANAX [Suspect]
     Dosage: 0.5 DF, TID
     Route: 048
  3. NITRODERM [Suspect]
     Indication: ISCHAEMIC CARDIOMYOPATHY
     Dosage: 10 MG, QD
     Route: 062
  4. ASPEGIC BABY [Suspect]
     Indication: ISCHAEMIC CARDIOMYOPATHY
     Dosage: 1 DF, QD
     Route: 048
     Dates: end: 20051004
  5. DEROXAT [Suspect]
     Indication: DEPRESSION
     Route: 048
     Dates: end: 20050928
  6. COZAAR [Suspect]
     Dosage: 50 MG, QD
     Route: 048
  7. ARIMIDEX [Concomitant]
     Route: 048
  8. ARTIFICIAL TEARS [Concomitant]
  9. MOVICOL [Concomitant]
     Route: 048

REACTIONS (3)
  - CARDIAC FAILURE [None]
  - GENERAL PHYSICAL HEALTH DETERIORATION [None]
  - HYPONATRAEMIA [None]
